FAERS Safety Report 5144455-6 (Version None)
Quarter: 2006Q4

REPORT INFORMATION
  Report Type: 
  Country: None (occurrence: None)
  Receive Date: 20061031
  Receipt Date: 20061017
  Transmission Date: 20070319
  Serious: Yes (Hospitalization)
  Sender: FDA-Public Use
  Company Number: MEDI-0005067

PATIENT
  Age: 5 Month

DRUGS (1)
  1. SYNAGIS [Suspect]
     Indication: ANTIVIRAL PROPHYLAXIS
     Dosage: 50 MG, INTRAMUSCULAR
     Route: 030
     Dates: start: 20060116, end: 20060217

REACTIONS (2)
  - APNOEA [None]
  - MALAISE [None]
